FAERS Safety Report 9083677 (Version 8)
Quarter: 2013Q3

REPORT INFORMATION
  Report Type: Spontaneous
  Country: US (occurrence: US)
  Receive Date: 20130130
  Receipt Date: 20130806
  Transmission Date: 20140515
  Serious: Yes (Hospitalization, Other)
  Sender: FDA-Public Use
  Company Number: US-PFIZER INC-2013037349

PATIENT
  Age: 68 Year
  Sex: Female
  Weight: 70.75 kg

DRUGS (7)
  1. NEURONTIN [Suspect]
     Indication: NEUROPATHY PERIPHERAL
     Dosage: 900 MG, 4X/DAY
     Route: 048
  2. NEURONTIN [Suspect]
     Indication: DIABETIC NEUROPATHY
  3. PREMARIN [Suspect]
     Dosage: UNK
  4. DIFLUCAN [Suspect]
     Dosage: UNK
  5. PREDNISOLONE [Concomitant]
     Dosage: UNK
  6. AMLODIPINE [Concomitant]
     Indication: HYPERTENSION
     Dosage: 10 MG, 1X/DAY
  7. FLUCONAZOLE [Concomitant]
     Dosage: 400 MG, 1X/DAY

REACTIONS (10)
  - Burning sensation [Unknown]
  - Feeling abnormal [Unknown]
  - Lung disorder [Unknown]
  - Back disorder [Unknown]
  - Herpes zoster [Unknown]
  - Pain [Unknown]
  - Emotional disorder [Unknown]
  - Neuropathy peripheral [Unknown]
  - Hypertension [Unknown]
  - Malaise [Unknown]
